FAERS Safety Report 17262504 (Version 1)
Quarter: 2019Q4

REPORT INFORMATION
  Report Type: Spontaneous
  Country: US (occurrence: US)
  Receive Date: 20191218
  Receipt Date: 20191218
  Transmission Date: 20200122
  Serious: No
  Sender: FDA-Public Use
  Company Number: None

PATIENT
  Age: 8 Week
  Sex: Male

DRUGS (1)
  1. EPOGEN [Suspect]
     Active Substance: ERYTHROPOIETIN
     Indication: ANAEMIA
     Dosage: ?          OTHER DOSE:300 UNITS; OTHER?
     Route: 058
     Dates: start: 201912

REACTIONS (1)
  - Prescribed overdose [None]

NARRATIVE: CASE EVENT DATE: 20191218
